FAERS Safety Report 5279776-X (Version None)
Quarter: 2007Q1

REPORT INFORMATION
  Report Type: 
  Country: None (occurrence: None)
  Receive Date: 20061215
  Receipt Date: 20060626
  Transmission Date: 20070707
  Serious: Yes (Life-Threatening, Hospitalization, Other)
  Sender: FDA-Public Use
  Company Number: HQWYE442728JUN06

PATIENT
  Age: 49 Year
  Sex: Female
  Weight: 59.93 kg

DRUGS (1)
  1. EFFEXOR XR [Suspect]
     Indication: HOT FLUSH
     Dosage: 150 MG 1X PER 1 DAY, ORAL
     Route: 048
     Dates: start: 20050801, end: 20060315

REACTIONS (2)
  - EXERCISE TOLERANCE DECREASED [None]
  - HYPONATRAEMIA [None]
